FAERS Safety Report 9706877 (Version 2)
Quarter: 2014Q1

REPORT INFORMATION
  Report Type: Spontaneous
  Country: DE (occurrence: DE)
  Receive Date: 20131125
  Receipt Date: 20140324
  Transmission Date: 20141002
  Serious: Yes (Other)
  Sender: FDA-Public Use
  Company Number: DE-ROCHE-1307989

PATIENT
  Age: 74 Year
  Sex: Female

DRUGS (4)
  1. ZELBORAF [Suspect]
     Indication: METASTATIC MALIGNANT MELANOMA
     Route: 048
     Dates: start: 201202, end: 201307
  2. ACITRETIN [Suspect]
     Indication: KERATOACANTHOMA
     Route: 065
  3. ACITRETIN [Suspect]
     Route: 065
  4. ALITRETINOIN [Concomitant]

REACTIONS (5)
  - Keratoacanthoma [Recovered/Resolved]
  - Metastases to lung [Unknown]
  - Headache [Unknown]
  - Nausea [Unknown]
  - Fatigue [Unknown]
